FAERS Safety Report 19441845 (Version 1)
Quarter: 2021Q2

REPORT INFORMATION
  Report Type: Spontaneous
  Country: GB (occurrence: GB)
  Receive Date: 20210621
  Receipt Date: 20210621
  Transmission Date: 20210717
  Serious: Yes (Other)
  Sender: FDA-Public Use
  Company Number: GB-ACCORD-228856

PATIENT
  Age: 66 Year
  Sex: Male
  Weight: 58.06 kg

DRUGS (4)
  1. IBUPROFEN. [Concomitant]
     Active Substance: IBUPROFEN
  2. AMITRIPTYLINE [Suspect]
     Active Substance: AMITRIPTYLINE
     Indication: NEURALGIA
     Route: 048
     Dates: start: 2012, end: 2017
  3. PARACETAMOL [Concomitant]
     Active Substance: ACETAMINOPHEN
  4. CODEINE [Concomitant]
     Active Substance: CODEINE

REACTIONS (1)
  - Memory impairment [Recovered/Resolved]
